FAERS Safety Report 10255781 (Version 1)
Quarter: 2014Q2

REPORT INFORMATION
  Report Type: Spontaneous
  Country: US (occurrence: US)
  Receive Date: 20140624
  Receipt Date: 20140624
  Transmission Date: 20141212
  Serious: Yes (Other)
  Sender: FDA-Public Use
  Company Number: US-BAYER-2014-089902

PATIENT
  Age: 36 Year
  Sex: Male

DRUGS (3)
  1. DACARBAZINE [Suspect]
     Indication: NEUROBLASTOMA
  2. DOXORUBICIN [Suspect]
     Indication: NEUROBLASTOMA
  3. VINCRISTINE [Suspect]
     Indication: NEUROBLASTOMA

REACTIONS (9)
  - Gastric polyps [None]
  - Colon adenoma [None]
  - Desmoid tumour [None]
  - Osteochondroma [None]
  - Osteoma [None]
  - Meningioma [None]
  - Parathyroid tumour benign [None]
  - Papillary thyroid cancer [None]
  - Off label use [None]
